FAERS Safety Report 9431325 (Version 1)
Quarter: 2013Q3

REPORT INFORMATION
  Report Type: Spontaneous
  Country: US (occurrence: US)
  Receive Date: 20130730
  Receipt Date: 20130730
  Transmission Date: 20140515
  Serious: Yes (Other)
  Sender: FDA-Public Use
  Company Number: US-FRI-1000046942

PATIENT
  Age: 50 Year
  Sex: Female

DRUGS (5)
  1. CELEXA [Suspect]
     Dosage: 40 MG
     Route: 048
     Dates: start: 20130523, end: 20130707
  2. CELEXA [Suspect]
     Dosage: 60 MG
     Route: 048
     Dates: start: 20130708, end: 20130717
  3. CELEXA [Suspect]
     Dosage: 40 MG
     Route: 048
     Dates: start: 20130718, end: 20130719
  4. CELEXA [Suspect]
     Dosage: 30 MG
     Route: 048
     Dates: start: 20130720
  5. ELAVIL [Concomitant]
     Dosage: 6.5 MG

REACTIONS (3)
  - Electrocardiogram T wave inversion [Recovered/Resolved]
  - Electrocardiogram QT prolonged [Recovered/Resolved]
  - Prescribed overdose [Recovered/Resolved]
